FAERS Safety Report 7550425-0 (Version None)
Quarter: 2011Q2

REPORT INFORMATION
  Report Type: 
  Country: None (occurrence: None)
  Receive Date: 20110615
  Receipt Date: 20110602
  Transmission Date: 20111010
  Serious: Yes (Other)
  Sender: FDA-Public Use
  Company Number: PT-GENENTECH-319799

PATIENT
  Sex: Female

DRUGS (11)
  1. XOLAIR [Suspect]
     Dosage: 300 MG, Q15D
     Dates: start: 20101001
  2. XOLAIR [Suspect]
     Dosage: 300 MG, Q15D
     Dates: start: 20110107
  3. ZAFIRLUKAST [Concomitant]
     Indication: PRODUCT USED FOR UNKNOWN INDICATION
  4. ALBUTEROL [Concomitant]
     Indication: PRODUCT USED FOR UNKNOWN INDICATION
  5. THEOPHYLLINE [Concomitant]
     Indication: PRODUCT USED FOR UNKNOWN INDICATION
  6. XOLAIR [Suspect]
     Indication: ASTHMA
     Dosage: 300 MG, Q15D
     Dates: start: 20100401, end: 20110101
  7. XOLAIR [Suspect]
     Dosage: 300 MG, Q15D
     Dates: start: 20101210
  8. XOLAIR [Suspect]
     Dosage: 300 MG, Q15D
     Dates: start: 20101223
  9. XOLAIR [Suspect]
     Dosage: 300 MG, Q15D
     Dates: start: 20110121
  10. SALMETEROL [Concomitant]
     Indication: PRODUCT USED FOR UNKNOWN INDICATION
  11. FLUTICASONE PROPIONATE [Concomitant]
     Indication: PRODUCT USED FOR UNKNOWN INDICATION

REACTIONS (6)
  - OEDEMA PERIPHERAL [None]
  - FEELING HOT [None]
  - VOMITING [None]
  - FATIGUE [None]
  - ABDOMINAL PAIN [None]
  - PAIN [None]
